FAERS Safety Report 6823176-5 (Version None)
Quarter: 2010Q3

REPORT INFORMATION
  Report Type: 
  Country: None (occurrence: None)
  Receive Date: 20100708
  Receipt Date: 20100629
  Transmission Date: 20110219
  Serious: Yes (Other)
  Sender: FDA-Public Use
  Company Number: NL-AMGEN-KDL421615

PATIENT
  Sex: Female

DRUGS (7)
  1. NEULASTA [Suspect]
     Indication: CHEMOTHERAPY
  2. GRANISETRON HCL [Concomitant]
  3. EMEND [Concomitant]
  4. MAGNESIUM OXIDE [Concomitant]
  5. DOMPERIDONE [Concomitant]
  6. RHINOCORT [Concomitant]
  7. QVAR 40 [Concomitant]

REACTIONS (6)
  - ANXIETY [None]
  - CHEST DISCOMFORT [None]
  - MALAISE [None]
  - NAUSEA [None]
  - PALPITATIONS [None]
  - THROAT TIGHTNESS [None]
